FAERS Safety Report 16734093 (Version 2)
Quarter: 2019Q3

REPORT INFORMATION
  Report Type: Report from Study
  Country: US (occurrence: US)
  Receive Date: 20190823
  Receipt Date: 20190924
  Transmission Date: 20191005
  Serious: Yes (Hospitalization)
  Sender: FDA-Public Use
  Company Number: US-EISAI MEDICAL RESEARCH-EC-2019-059091

PATIENT
  Sex: Male
  Weight: 97.27 kg

DRUGS (8)
  1. LISINOPRIL. [Concomitant]
     Active Substance: LISINOPRIL
  2. AFINITOR [Concomitant]
     Active Substance: EVEROLIMUS
  3. ESCITALOPRAM OXALATE. [Concomitant]
     Active Substance: ESCITALOPRAM OXALATE
  4. LENVIMA [Suspect]
     Active Substance: LENVATINIB
     Indication: RENAL CELL CARCINOMA
     Route: 048
     Dates: start: 20190703, end: 201908
  5. FENTANYL. [Concomitant]
     Active Substance: FENTANYL
  6. METHYLPREDNISOLONE. [Concomitant]
     Active Substance: METHYLPREDNISOLONE
  7. MORPHINE [Concomitant]
     Active Substance: MORPHINE
  8. BACLOFEN. [Concomitant]
     Active Substance: BACLOFEN

REACTIONS (4)
  - Confusional state [Unknown]
  - Blood pressure increased [Unknown]
  - Constipation [Unknown]
  - Rash [Unknown]

NARRATIVE: CASE EVENT DATE: 2019
